FAERS Safety Report 7775679-7 (Version None)
Quarter: 2011Q3

REPORT INFORMATION
  Report Type: 
  Country: None (occurrence: None)
  Receive Date: 20110923
  Receipt Date: 20110916
  Transmission Date: 20111222
  Serious: Yes (Hospitalization)
  Sender: FDA-Public Use
  Company Number: US-GLAXOSMITHKLINE-A0944972A

PATIENT
  Age: 59 Year
  Sex: Female

DRUGS (9)
  1. ALBUTEROL SULFATE NEBULIZER [Concomitant]
  2. UNKNOWN [Concomitant]
  3. VENTOLIN HFA [Concomitant]
  4. GLIMEPIRIDE [Concomitant]
  5. ASPIRIN [Concomitant]
  6. ANTIBIOTIC [Concomitant]
  7. VERAMYST [Suspect]
     Indication: SINUSITIS
     Dosage: 4SPR AT NIGHT
     Route: 045
     Dates: start: 20110401, end: 20110522
  8. NORVASC [Concomitant]
  9. LISINOPRIL [Concomitant]

REACTIONS (6)
  - APHASIA [None]
  - PNEUMONIA [None]
  - OXYGEN SATURATION DECREASED [None]
  - ASTHENIA [None]
  - TRANSIENT ISCHAEMIC ATTACK [None]
  - NASAL DRYNESS [None]
